FAERS Safety Report 24173489 (Version 1)
Quarter: 2024Q3

REPORT INFORMATION
  Report Type: Spontaneous
  Country: CA (occurrence: CA)
  Receive Date: 20240805
  Receipt Date: 20240805
  Transmission Date: 20241017
  Serious: Yes (Death, Other)
  Sender: BRISTOL MYERS SQUIBB
  Company Number: CA-BRISTOL-MYERS SQUIBB COMPANY-2024-122884

PATIENT
  Age: 81 Year
  Sex: Female
  Weight: 86 kg

DRUGS (16)
  1. AZACITIDINE [Suspect]
     Active Substance: AZACITIDINE
     Indication: Acute myeloid leukaemia
     Dosage: CYCLICAL
     Route: 058
  2. ATORVASTATIN [Concomitant]
     Active Substance: ATORVASTATIN
  3. BENZTROPINE MESYLATE [Concomitant]
     Active Substance: BENZTROPINE MESYLATE
  4. CALCIUM CARBONATE [Concomitant]
     Active Substance: CALCIUM CARBONATE
  5. CLONAZEPAM [Concomitant]
     Active Substance: CLONAZEPAM
  6. FAMOTIDINE [Concomitant]
     Active Substance: FAMOTIDINE
  7. FLUTICASONE [Concomitant]
     Active Substance: FLUTICASONE
  8. HALOPERIDOL [Concomitant]
     Active Substance: HALOPERIDOL
  9. LORAZEPAM [Concomitant]
     Active Substance: LORAZEPAM
  10. MORPHINE [Concomitant]
     Active Substance: MORPHINE
  11. OMEGA-3 FATTY ACIDS [Concomitant]
     Active Substance: OMEGA-3 FATTY ACIDS
  12. ALBUTEROL [Concomitant]
     Active Substance: ALBUTEROL
  13. VENCLEXTA [Concomitant]
     Active Substance: VENETOCLAX
     Indication: Acute myeloid leukaemia
  14. VENCLEXTA [Concomitant]
     Active Substance: VENETOCLAX
  15. VENCLEXTA [Concomitant]
     Active Substance: VENETOCLAX
  16. VITAMIN D NOS [Concomitant]
     Active Substance: CHOLECALCIFEROL\ERGOCALCIFEROL

REACTIONS (1)
  - Death [Fatal]
